FAERS Safety Report 19300767 (Version 4)
Quarter: 2021Q3

REPORT INFORMATION
  Report Type: Spontaneous
  Country: DE (occurrence: DE)
  Receive Date: 20210524
  Receipt Date: 20210701
  Transmission Date: 20211014
  Serious: Yes (Other)
  Sender: FDA-Public Use
  Company Number: DE-PFIZER INC-2021548076

PATIENT
  Age: 63 Year
  Sex: Male

DRUGS (16)
  1. PIPAMPERON [Suspect]
     Active Substance: PIPAMPERONE HYDROCHLORIDE
     Dosage: UNK UNK, QD
     Route: 048
     Dates: start: 20210409, end: 20210409
  2. HALDOL [Suspect]
     Active Substance: HALOPERIDOL
     Dosage: UNK UNK, QD
     Route: 048
     Dates: start: 20210409, end: 20210409
  3. AKINETON [Suspect]
     Active Substance: BIPERIDEN HYDROCHLORIDE
     Dosage: UNK UNK, QD
     Route: 048
     Dates: start: 20210409, end: 20210409
  4. LEVETIRACETAM. [Concomitant]
     Active Substance: LEVETIRACETAM
     Dosage: 2500 MILLIGRAM, QD
     Route: 048
  5. TEGRETAL RETARD [Concomitant]
     Active Substance: CARBAMAZEPINE
     Dosage: UNK UNK, QD
     Route: 048
  6. METOPROLOL. [Suspect]
     Active Substance: METOPROLOL
     Dosage: UNK
     Route: 048
     Dates: start: 20210409, end: 20210409
  7. CLOZAPIN [Suspect]
     Active Substance: CLOZAPINE
     Dosage: UNK UNK, QD
     Route: 048
     Dates: start: 20210409, end: 20210409
  8. VIGANTOL [COLECALCIFEROL] [Suspect]
     Active Substance: CHOLECALCIFEROL
     Dosage: UNK UNK, QD
     Route: 048
     Dates: start: 20210409, end: 20210409
  9. ORFIRIL [Suspect]
     Active Substance: VALPROATE SODIUM
     Dosage: UNK UNK, QD
     Route: 048
     Dates: start: 20210409, end: 20210409
  10. ORFIRIL [Concomitant]
     Active Substance: VALPROATE SODIUM
     Dosage: UNK
     Route: 048
  11. ORFIRIL [Concomitant]
     Active Substance: VALPROATE SODIUM
     Dosage: UNK
     Route: 048
  12. PANTOPRAZOLE [Suspect]
     Active Substance: PANTOPRAZOLE
     Dosage: UNK UNK, QD
     Route: 048
     Dates: start: 20210409, end: 20210409
  13. METOPROLOL. [Suspect]
     Active Substance: METOPROLOL
     Dosage: 5 MILLIGRAM
     Route: 048
  14. GASTROZEPIN [Concomitant]
     Active Substance: PIRENZEPINE HYDROCHLORIDE
     Dosage: UNK UNK, QD
     Route: 048
  15. LAMOTRIGIN [Concomitant]
     Active Substance: LAMOTRIGINE
     Dosage: UNK UNK, QD
     Route: 048
  16. LAMOTRIGIN [Concomitant]
     Active Substance: LAMOTRIGINE
     Dosage: UNK UNK, QD
     Route: 048
     Dates: start: 20210409, end: 20210409

REACTIONS (7)
  - Generalised tonic-clonic seizure [Recovered/Resolved]
  - Disorientation [Recovering/Resolving]
  - Wrong patient received product [Unknown]
  - Accidental exposure to product [Recovered/Resolved]
  - Seizure [Recovering/Resolving]
  - Exposure via ingestion [Recovered/Resolved]
  - Sopor [Recovering/Resolving]

NARRATIVE: CASE EVENT DATE: 20210409
